FAERS Safety Report 15778353 (Version 2)
Quarter: 2019Q1

REPORT INFORMATION
  Report Type: Report from Study
  Country: US (occurrence: US)
  Receive Date: 20181231
  Receipt Date: 20190130
  Transmission Date: 20190417
  Serious: Yes (Hospitalization, Other)
  Sender: FDA-Public Use
  Company Number: US-BAUSCH-BL-2018-033363

PATIENT
  Sex: Male
  Weight: 86.26 kg

DRUGS (2)
  1. LACTULOSE. [Concomitant]
     Active Substance: LACTULOSE
     Indication: PRODUCT USED FOR UNKNOWN INDICATION
  2. XIFAXAN [Suspect]
     Active Substance: RIFAXIMIN
     Indication: HEPATIC CIRRHOSIS
     Route: 065
     Dates: start: 201805, end: 2018

REACTIONS (8)
  - Urinary tract infection [Recovered/Resolved]
  - Therapy cessation [Not Recovered/Not Resolved]
  - Ill-defined disorder [Unknown]
  - Thrombosis [Recovered/Resolved]
  - Haemorrhage [Recovered/Resolved]
  - Sepsis [Recovered/Resolved]
  - Bladder cancer [Not Recovered/Not Resolved]
  - Product availability issue [Not Recovered/Not Resolved]

NARRATIVE: CASE EVENT DATE: 2018
